FAERS Safety Report 10128151 (Version 2)
Quarter: 2014Q2

REPORT INFORMATION
  Report Type: Spontaneous
  Country: IT (occurrence: IT)
  Receive Date: 20140428
  Receipt Date: 20140507
  Transmission Date: 20141212
  Serious: Yes (Other)
  Sender: FDA-Public Use
  Company Number: IT-ROCHE-1387455

PATIENT
  Age: 86 Year
  Sex: Female

DRUGS (3)
  1. CEFTRIAXONE SODIUM [Suspect]
     Indication: GENITAL ABSCESS
     Route: 042
     Dates: start: 20131129, end: 20131208
  2. SINTROM [Interacting]
     Indication: ATRIAL FIBRILLATION
     Route: 048
     Dates: start: 20090810, end: 20131209
  3. AUGMENTIN [Interacting]
     Indication: GENITAL ABSCESS
     Route: 048
     Dates: start: 20131202, end: 20131210

REACTIONS (2)
  - International normalised ratio increased [Recovered/Resolved]
  - Drug interaction [Unknown]
